FAERS Safety Report 9647725 (Version 2)
Quarter: 2013Q4

REPORT INFORMATION
  Report Type: Spontaneous
  Country: US (occurrence: US)
  Receive Date: 20131028
  Receipt Date: 20131028
  Transmission Date: 20140711
  Serious: Yes (Hospitalization)
  Sender: FDA-Public Use
  Company Number: US-JNJFOC-20130905993

PATIENT
  Age: 2 Year
  Sex: Male
  Weight: 17.24 kg

DRUGS (2)
  1. MOTRIN INFANTS DROP BERRY [Suspect]
     Route: 048
  2. MOTRIN INFANTS DROP BERRY [Suspect]
     Indication: PYREXIA
     Route: 048
     Dates: start: 20130906, end: 20130906

REACTIONS (3)
  - Product contamination [Unknown]
  - Pyrexia [Unknown]
  - Dysgeusia [Unknown]
